FAERS Safety Report 19877600 (Version 2)
Quarter: 2022Q3

REPORT INFORMATION
  Report Type: Spontaneous
  Country: MY (occurrence: MY)
  Receive Date: 20210923
  Receipt Date: 20220704
  Transmission Date: 20221027
  Serious: Yes (Other)
  Sender: FDA-Public Use
  Company Number: MY-NOVARTISPH-NVSC2021MY213437

PATIENT
  Age: 39 Year
  Sex: Female

DRUGS (11)
  1. RIBOCICLIB [Suspect]
     Active Substance: RIBOCICLIB
     Indication: Breast cancer
     Dosage: UNK (3 WEEKS ON 1 WEEK OFF)
     Route: 065
     Dates: start: 202004
  2. RIBOCICLIB [Suspect]
     Active Substance: RIBOCICLIB
     Indication: Human epidermal growth factor receptor negative
     Dosage: UNK (RESTARTED AFTER 1 WEEK REST)
     Route: 065
  3. RIBOCICLIB [Suspect]
     Active Substance: RIBOCICLIB
     Dosage: UNK (WITHHELD FOR 1 WEEK THEN RESTART WITH DOSE REDUCTION)
     Route: 065
  4. LETROZOLE [Suspect]
     Active Substance: LETROZOLE
     Indication: Breast cancer
     Dosage: UNK
     Route: 065
     Dates: start: 202003
  5. LETROZOLE [Suspect]
     Active Substance: LETROZOLE
     Indication: Human epidermal growth factor receptor negative
     Dosage: UNK
     Route: 065
     Dates: start: 202004
  6. ZOLEDRONIC ACID [Suspect]
     Active Substance: ZOLEDRONIC ACID
     Indication: Breast cancer
     Dosage: UNK
     Route: 065
     Dates: start: 202003
  7. ZOLEDRONIC ACID [Suspect]
     Active Substance: ZOLEDRONIC ACID
     Indication: Human epidermal growth factor receptor negative
  8. GOSERELIN [Suspect]
     Active Substance: GOSERELIN
     Indication: Breast cancer
     Dosage: UNK
     Route: 065
     Dates: start: 202004
  9. GOSERELIN [Suspect]
     Active Substance: GOSERELIN
     Indication: Human epidermal growth factor receptor negative
  10. DOCETAXEL [Concomitant]
     Active Substance: DOCETAXEL
     Indication: Product used for unknown indication
     Dosage: UNK UNK, Q3W (40GY/15F/3WEEKS)
     Route: 065
  11. CYCLOPHOSPHAMIDE\EPIRUBICIN HYDROCHLORIDE\FLUOROURACIL [Concomitant]
     Active Substance: CYCLOPHOSPHAMIDE\EPIRUBICIN HYDROCHLORIDE\FLUOROURACIL
     Indication: Product used for unknown indication
     Dosage: UNK, Q3W (40GY/15F/3WEEKS)
     Route: 065

REACTIONS (3)
  - Bone lesion [Recovering/Resolving]
  - Chest injury [Recovering/Resolving]
  - Pyrexia [Unknown]
